FAERS Safety Report 6310437-1 (Version None)
Quarter: 2009Q3

REPORT INFORMATION
  Report Type: 
  Country: None (occurrence: None)
  Receive Date: 20090814
  Receipt Date: 20090805
  Transmission Date: 20100115
  Serious: Yes (Death)
  Sender: FDA-Public Use
  Company Number: ZA-PFIZER INC-2009250515

PATIENT
  Age: 79 Year

DRUGS (2)
  1. CELEBREX [Suspect]
     Indication: ARTHRITIS
     Dosage: FREQUENCY: BD, DAILY;
     Route: 048
     Dates: start: 20090803, end: 20090805
  2. TRAMACET [Concomitant]
     Route: 048
     Dates: start: 20090803

REACTIONS (2)
  - DEATH [None]
  - DIZZINESS [None]
